FAERS Safety Report 9747316 (Version 1)
Quarter: 2013Q4

REPORT INFORMATION
  Report Type: Report from Study
  Country: US (occurrence: US)
  Receive Date: 20131212
  Receipt Date: 20131212
  Transmission Date: 20140711
  Serious: Yes (Hospitalization)
  Sender: FDA-Public Use
  Company Number: US-ROCHE-1313661

PATIENT
  Age: 53 Year
  Sex: Female
  Weight: 62.3 kg

DRUGS (28)
  1. RITUXIMAB [Suspect]
     Indication: MANTLE CELL LYMPHOMA
     Route: 042
     Dates: start: 20131029, end: 20131029
  2. VELCADE [Suspect]
     Indication: MANTLE CELL LYMPHOMA
     Route: 042
     Dates: start: 20131030, end: 20131103
  3. CYCLOPHOSPHAMIDE [Suspect]
     Indication: MANTLE CELL LYMPHOMA
     Route: 042
     Dates: start: 20131030, end: 20131103
  4. VINCRISTINE [Suspect]
     Indication: MANTLE CELL LYMPHOMA
     Route: 042
     Dates: start: 20131030, end: 20131103
  5. DOXORUBICIN [Suspect]
     Indication: MANTLE CELL LYMPHOMA
     Route: 042
     Dates: start: 20131030, end: 20131103
  6. DEXAMETHASONE [Suspect]
     Indication: MANTLE CELL LYMPHOMA
     Route: 042
     Dates: start: 20131030, end: 20131103
  7. METHOTREXATE [Suspect]
     Indication: MANTLE CELL LYMPHOMA
     Route: 065
     Dates: start: 20131030, end: 20131103
  8. CYTARABINE [Suspect]
     Indication: MANTLE CELL LYMPHOMA
     Route: 065
     Dates: start: 20131030, end: 20131103
  9. ACETAMINOPHEN [Concomitant]
  10. CIPROFLOXACIN [Concomitant]
  11. BUPROPION [Concomitant]
  12. ALLOPURINOL [Concomitant]
  13. FLUCONAZOLE [Concomitant]
  14. PREDNISONE [Concomitant]
  15. SERTRALINE [Concomitant]
  16. VALACICLOVIR [Concomitant]
  17. OXYCODONE [Concomitant]
  18. FUROSEMIDE [Concomitant]
  19. SOLU-MEDROL [Concomitant]
  20. FAMOTIDINE [Concomitant]
  21. AZITHROMYCIN [Concomitant]
  22. CEFTRIAXONE [Concomitant]
  23. SENNOSIDES A AND B [Concomitant]
  24. DOCUSATE [Concomitant]
  25. ZOFRAN [Concomitant]
  26. MESNEX [Concomitant]
  27. ATIVAN [Concomitant]
  28. FILGRASTIM [Concomitant]
     Route: 065

REACTIONS (2)
  - Acute respiratory failure [Not Recovered/Not Resolved]
  - Infusion related reaction [Recovered/Resolved]
